FAERS Safety Report 22151615 (Version 1)
Quarter: 2023Q1

REPORT INFORMATION
  Report Type: Spontaneous
  Country: US (occurrence: None)
  Receive Date: 20230328
  Receipt Date: 20230328
  Transmission Date: 20230417
  Serious: Yes (Life-Threatening, Hospitalization)
  Sender: FDA-Public Use
  Company Number: None

PATIENT
  Age: 42 Year

DRUGS (1)
  1. CIMZIA [Suspect]
     Active Substance: CERTOLIZUMAB PEGOL
     Indication: Arthritis
     Dosage: FREQUENCY : ONCE;?
     Dates: start: 20230303

REACTIONS (5)
  - Urticaria [None]
  - Dyspnoea [None]
  - Anaphylactic shock [None]
  - Injection related reaction [None]
  - Fall [None]

NARRATIVE: CASE EVENT DATE: 20230309
